FAERS Safety Report 8082718-5 (Version None)
Quarter: 2012Q1

REPORT INFORMATION
  Report Type: 
  Country: None (occurrence: None)
  Receive Date: 20120127
  Receipt Date: 20110301
  Transmission Date: 20120608
  Serious: No
  Sender: FDA-Public Use
  Company Number: US-ABBOTT-11P-163-0708363-00

PATIENT
  Age: 63 Year
  Sex: Female

DRUGS (8)
  1. SYNTHROID [Concomitant]
     Indication: HYPOTHYROIDISM
  2. PAXIL [Concomitant]
     Indication: DEPRESSION
  3. AMITRIPTYLINE HCL [Concomitant]
     Indication: INSOMNIA
     Dosage: AT BEDTIME
  4. METHOTREXATE [Concomitant]
     Indication: PSORIATIC ARTHROPATHY
     Dosage: WEEKLY
     Route: 058
  5. EYE DROPS [Concomitant]
     Indication: DRY EYE
  6. LISINOPRIL [Concomitant]
     Indication: HYPERTENSION
     Dosage: 20/25 MG DAILY
  7. HUMIRA [Suspect]
     Indication: PSORIATIC ARTHROPATHY
     Dates: start: 20101201
  8. LORTAB [Concomitant]
     Indication: PAIN

REACTIONS (6)
  - DYSPNOEA [None]
  - ARTHRALGIA [None]
  - RASH PRURITIC [None]
  - APHTHOUS STOMATITIS [None]
  - FEELING ABNORMAL [None]
  - PYREXIA [None]
